FAERS Safety Report 15456985 (Version 5)
Quarter: 2019Q1

REPORT INFORMATION
  Report Type: Report from Study
  Country: US (occurrence: US)
  Receive Date: 20181002
  Receipt Date: 20190318
  Transmission Date: 20190417
  Serious: Yes (Hospitalization, Other)
  Sender: FDA-Public Use
  Company Number: US-ACTELION-A-NJ2018-179512

PATIENT
  Sex: Female
  Weight: 72.56 kg

DRUGS (3)
  1. UPTRAVI [Suspect]
     Active Substance: SELEXIPAG
     Dosage: 800 MCG, BID
     Route: 048
  2. ADCIRCA [Concomitant]
     Active Substance: TADALAFIL
  3. UPTRAVI [Suspect]
     Active Substance: SELEXIPAG
     Indication: PULMONARY ARTERIAL HYPERTENSION
     Dosage: 600 MCG, BID
     Route: 048

REACTIONS (10)
  - Skin graft [Unknown]
  - Impaired healing [Unknown]
  - Clostridium difficile colitis [Unknown]
  - Headache [Unknown]
  - Mental status changes [Unknown]
  - Faeces soft [Unknown]
  - Infection [Unknown]
  - Wound [Unknown]
  - Skin disorder [Not Recovered/Not Resolved]
  - Procedural complication [Unknown]
